FAERS Safety Report 4960481-1 (Version None)
Quarter: 2006Q2

REPORT INFORMATION
  Report Type: 
  Country: None (occurrence: None)
  Receive Date: 20060403
  Receipt Date: 20060327
  Transmission Date: 20061013
  Serious: Yes (Death)
  Sender: FDA-Public Use
  Company Number: PHBS2006FI04545

PATIENT
  Age: 1 Day
  Sex: Male
  Weight: 3.8 kg

DRUGS (2)
  1. TRILEPTAL [Suspect]
     Route: 064
  2. FRISIUM [Suspect]
     Route: 064

REACTIONS (9)
  - BRAIN OEDEMA [None]
  - CAESAREAN SECTION [None]
  - CARBON DIOXIDE INCREASED [None]
  - DRUG EXPOSURE DURING PREGNANCY [None]
  - HYPOTONIA [None]
  - LABOUR INDUCTION [None]
  - NEONATAL DISORDER [None]
  - PO2 DECREASED [None]
  - POSTMATURE BABY [None]
